FAERS Safety Report 15128018 (Version 2)
Quarter: 2018Q3

REPORT INFORMATION
  Report Type: Spontaneous
  Country: US (occurrence: US)
  Receive Date: 20180710
  Receipt Date: 20180821
  Transmission Date: 20181010
  Serious: Yes (Hospitalization)
  Sender: FDA-Public Use
  Company Number: US-B.I. PHARMACEUTICALS,INC./RIDGEFIELD-2018-BI-035410

PATIENT
  Age: 70 Year
  Sex: Male

DRUGS (3)
  1. PRADAXA [Suspect]
     Active Substance: DABIGATRAN ETEXILATE MESYLATE
     Indication: ATRIAL FIBRILLATION
     Dosage: FORM STRENGTH: 150 MG; FORMULATION: CAPSULE, ACTION TAKEN: DOSAGE NOT CHANGED
     Route: 048
     Dates: start: 201702
  2. SOTALOL. [Concomitant]
     Active Substance: SOTALOL
     Indication: HEART RATE IRREGULAR
     Route: 065
  3. METPROLOL [Concomitant]
     Active Substance: METOPROLOL
     Indication: PRODUCT USED FOR UNKNOWN INDICATION
     Route: 065

REACTIONS (2)
  - Sinus node dysfunction [Unknown]
  - Cardiac pacemaker insertion [Recovered/Resolved]

NARRATIVE: CASE EVENT DATE: 20170914
